FAERS Safety Report 21365404 (Version 1)
Quarter: 2022Q3

REPORT INFORMATION
  Report Type: Spontaneous
  Country: US (occurrence: US)
  Receive Date: 20220922
  Receipt Date: 20220922
  Transmission Date: 20221027
  Serious: No
  Sender: FDA-Public Use
  Company Number: US-PFIZER INC-202200766035

PATIENT
  Age: 65 Year
  Sex: Female

DRUGS (1)
  1. VORICONAZOLE [Suspect]
     Active Substance: VORICONAZOLE
     Indication: Blastomycosis
     Dosage: 300 MG, (1.5 TABLETS)
     Route: 048

REACTIONS (2)
  - Off label use [Unknown]
  - Blood test abnormal [Unknown]
